FAERS Safety Report 7969637-7 (Version None)
Quarter: 2011Q4

REPORT INFORMATION
  Report Type: 
  Country: None (occurrence: None)
  Receive Date: 20111122
  Receipt Date: 20110823
  Transmission Date: 20120403
  Serious: No
  Sender: FDA-Public Use
  Company Number: PHEH2011US02321

PATIENT
  Age: 41 Year
  Sex: Male

DRUGS (2)
  1. GILENYA [Suspect]
     Dosage: 0.5 MG, QD, ORAL
     Route: 048
     Dates: start: 20110408
  2. FAMPRIDINE (FAMPRIDINE) [Suspect]

REACTIONS (4)
  - DECREASED INTEREST [None]
  - MEMORY IMPAIRMENT [None]
  - EXPIRED DRUG ADMINISTERED [None]
  - DEPRESSED MOOD [None]
